FAERS Safety Report 19582754 (Version 4)
Quarter: 2021Q3

REPORT INFORMATION
  Report Type: Report from Study
  Country: JP (occurrence: JP)
  Receive Date: 20210720
  Receipt Date: 20210726
  Transmission Date: 20211014
  Serious: Yes (Hospitalization, Other)
  Sender: FDA-Public Use
  Company Number: JP-PFIZER INC-2021882267

PATIENT
  Age: 76 Year

DRUGS (2)
  1. BRAFTOVI [Suspect]
     Active Substance: ENCORAFENIB
     Indication: COLON CANCER
     Dosage: UNK
     Route: 048
     Dates: start: 20210225, end: 20210427
  2. CETUXIMAB. [Concomitant]
     Active Substance: CETUXIMAB
     Indication: COLON CANCER
     Dosage: UNK
     Route: 065
     Dates: start: 20210225

REACTIONS (6)
  - Nausea [Unknown]
  - Headache [Unknown]
  - Ileus [Unknown]
  - Diarrhoea [Unknown]
  - Constipation [Unknown]
  - Decreased appetite [Unknown]
